FAERS Safety Report 5268660-3 (Version None)
Quarter: 2007Q1

REPORT INFORMATION
  Report Type: 
  Country: None (occurrence: None)
  Receive Date: 20070313
  Receipt Date: 20070301
  Transmission Date: 20070707
  Serious: Yes (Death)
  Sender: FDA-Public Use
  Company Number: 237493

PATIENT
  Age: 13 Month
  Sex: Female

DRUGS (8)
  1. MABTHERA (RITUXIMAB) CONC FOR SOLUTION FOR INFUSION [Suspect]
  2. GANCICLOVIR SODIUM [Suspect]
     Dates: start: 20050806, end: 20050808
  3. NEUPOGEN [Concomitant]
  4. NOVOSEVEN [Concomitant]
  5. CYCLOPHOSPHAMIDE [Concomitant]
  6. DOXORUBICIN HCL [Concomitant]
  7. VINCRISTINE SULFATE [Concomitant]
  8. PREDNISONE TAB [Concomitant]

REACTIONS (15)
  - ANURIA [None]
  - BACTERIAL SEPSIS [None]
  - CHOLANGITIS [None]
  - CHOLESTASIS [None]
  - CIRCULATORY COLLAPSE [None]
  - DIALYSIS [None]
  - DRUG TOXICITY [None]
  - ENDOTOXIC SHOCK [None]
  - GASTROINTESTINAL HAEMORRHAGE [None]
  - HAEMORRHAGE [None]
  - HYPOTENSION [None]
  - MULTI-ORGAN FAILURE [None]
  - RENAL FAILURE [None]
  - RENAL INFARCT [None]
  - TRANSPLANT REJECTION [None]
